FAERS Safety Report 16932471 (Version 1)
Quarter: 2019Q4

REPORT INFORMATION
  Report Type: Spontaneous
  Country: US (occurrence: US)
  Receive Date: 20191017
  Receipt Date: 20191017
  Transmission Date: 20200122
  Serious: No
  Sender: FDA-Public Use
  Company Number: US-C B FLEET CO INC-201903-US-000676

PATIENT
  Age: 66 Year
  Sex: Female

DRUGS (1)
  1. MONISTAT 3 3-DAY PRE-FILLED APPLICATORS [Suspect]
     Active Substance: MICONAZOLE NITRATE
     Indication: FUNGAL INFECTION
     Dosage: USED 3 DOSES
     Route: 067

REACTIONS (10)
  - Vulvovaginal pruritus [Unknown]
  - Nausea [Unknown]
  - Malaise [Unknown]
  - Lymphadenitis [Unknown]
  - Vulvovaginal burning sensation [Unknown]
  - Muscle spasms [Unknown]
  - Pyrexia [Unknown]
  - Headache [Unknown]
  - Vulvovaginal pain [Unknown]
  - Vulvovaginal swelling [Unknown]
